FAERS Safety Report 21074422 (Version 1)
Quarter: 2022Q3

REPORT INFORMATION
  Report Type: Spontaneous
  Country: FR (occurrence: FR)
  Receive Date: 20220713
  Receipt Date: 20220713
  Transmission Date: 20221027
  Serious: Yes (Hospitalization)
  Sender: FDA-Public Use
  Company Number: FR-AFSSAPS-TS20221440

PATIENT
  Age: 54 Year
  Sex: Female

DRUGS (4)
  1. ESOMEPRAZOLE [Suspect]
     Active Substance: ESOMEPRAZOLE
     Indication: Helicobacter gastritis
     Dosage: UNK
     Route: 048
     Dates: start: 202203, end: 202203
  2. PYLERA [Suspect]
     Active Substance: BISMUTH SUBCITRATE POTASSIUM\METRONIDAZOLE\TETRACYCLINE HYDROCHLORIDE
     Indication: Helicobacter gastritis
     Dosage: UNK
     Route: 048
     Dates: start: 202203, end: 202203
  3. MODERNA COVID-19 VACCINE [Suspect]
     Active Substance: ELASOMERAN
     Indication: COVID-19 immunisation
     Dosage: 1 DOSAGE FORM, R1
     Route: 030
     Dates: start: 202201, end: 202201
  4. CANDESARTAN CILEXETIL [Concomitant]
     Active Substance: CANDESARTAN CILEXETIL
     Indication: Product used for unknown indication
     Dosage: 4 MILLIGRAM, DAILY
     Route: 048

REACTIONS (1)
  - Eosinophilic fasciitis [Recovering/Resolving]

NARRATIVE: CASE EVENT DATE: 20220301
